FAERS Safety Report 23144122 (Version 1)
Quarter: 2023Q4

REPORT INFORMATION
  Report Type: Spontaneous
  Country: FR (occurrence: FR)
  Receive Date: 20231103
  Receipt Date: 20231103
  Transmission Date: 20240109
  Serious: Yes (Other)
  Sender: FDA-Public Use
  Company Number: None

PATIENT
  Age: 67 Year
  Sex: Male
  Weight: 71 kg

DRUGS (2)
  1. YERVOY [Suspect]
     Active Substance: IPILIMUMAB
     Indication: Metastatic malignant melanoma
     Dosage: 3 MG/KG
     Route: 042
     Dates: start: 20230718, end: 20230718
  2. OPDIVO [Suspect]
     Active Substance: NIVOLUMAB
     Indication: Metastatic malignant melanoma
     Dosage: 1 MG/KG
     Route: 042
     Dates: start: 20230718

REACTIONS (4)
  - Acute motor-sensory axonal neuropathy [Recovering/Resolving]
  - Optic neuropathy [Recovering/Resolving]
  - Meningoradiculitis [Recovering/Resolving]
  - Prescribed overdose [Unknown]

NARRATIVE: CASE EVENT DATE: 20230818
